FAERS Safety Report 8312432-X (Version None)
Quarter: 2012Q2

REPORT INFORMATION
  Report Type: 
  Country: None (occurrence: None)
  Receive Date: 20120425
  Receipt Date: 20120316
  Transmission Date: 20120825
  Serious: Yes (Hospitalization)
  Sender: FDA-Public Use
  Company Number: PR-ABBOTT-12P-131-0908691-00

PATIENT
  Sex: Female
  Weight: 79.45 kg

DRUGS (6)
  1. HUMIRA [Suspect]
     Indication: RHEUMATOID ARTHRITIS
     Route: 058
     Dates: start: 20111001, end: 20120210
  2. XANTAC [Concomitant]
     Indication: GASTRITIS
     Dosage: 300MG DAILY, 1 TABLET DAILY PRN
     Route: 048
  3. NEURONTIN [Concomitant]
     Indication: RHEUMATOID ARTHRITIS
     Dosage: 600 MG DAILY, 1 TABLET BID PRN
     Route: 048
     Dates: start: 20110101, end: 20120214
  4. SYNTHROID [Concomitant]
     Indication: THYROID NEOPLASM
     Dosage: 25, ONE TABLET DAILY
     Route: 048
     Dates: start: 20090101
  5. HEMATRON RX [Concomitant]
     Indication: HAEMOGLOBIN DECREASED
     Dates: end: 20120214
  6. CATAPHIAM [Concomitant]
     Indication: RHEUMATOID ARTHRITIS
     Dosage: 80 MG DAILY, 1 TABLET BID PRN
     Route: 048
     Dates: start: 20110101, end: 20120214

REACTIONS (2)
  - RENAL CYST [None]
  - DIVERTICULITIS [None]
